FAERS Safety Report 9137817 (Version 1)
Quarter: 2013Q1

REPORT INFORMATION
  Report Type: Spontaneous
  Country: US (occurrence: US)
  Receive Date: 20130304
  Receipt Date: 20130304
  Transmission Date: 20140127
  Serious: No
  Sender: FDA-Public Use
  Company Number: US-ABBOTT-12P-163-0945985-00

PATIENT
  Sex: Male

DRUGS (8)
  1. ANDROGEL 1% [Suspect]
     Indication: BLOOD TESTOSTERONE DECREASED
     Dosage: 2 IN 1 DAY, 4 PUMPS IN AM AND AT NIGHT PER MD INSTRUCTION
     Route: 061
     Dates: start: 2010, end: 201204
  2. MULTIVITAMIN [Concomitant]
     Indication: VITAMIN SUPPLEMENTATION
  3. VITAMIN B [Concomitant]
     Indication: VITAMIN SUPPLEMENTATION
  4. B COMPLEX [Concomitant]
     Indication: VITAMIN SUPPLEMENTATION
  5. TONALIN [Concomitant]
     Indication: SUPPLEMENTATION THERAPY
  6. FISH OIL [Concomitant]
     Indication: SUPPLEMENTATION THERAPY
  7. CALCIUM [Concomitant]
     Indication: MINERAL SUPPLEMENTATION
  8. GLUCOSAMINE [Concomitant]
     Indication: SUPPLEMENTATION THERAPY

REACTIONS (3)
  - Bilirubin conjugated increased [Recovered/Resolved]
  - Blood bilirubin increased [Recovered/Resolved]
  - Blood bilirubin increased [Recovered/Resolved]
